FAERS Safety Report 10548851 (Version 3)
Quarter: 2015Q2

REPORT INFORMATION
  Report Type: Spontaneous
  Country: US (occurrence: US)
  Receive Date: 20141028
  Receipt Date: 20150430
  Transmission Date: 20150821
  Serious: Yes (Hospitalization, Other)
  Sender: FDA-Public Use
  Company Number: US-BAYER-2014-156394

PATIENT
  Age: 20 Year
  Sex: Female
  Weight: 52 kg

DRUGS (2)
  1. YAZ [Concomitant]
     Active Substance: DROSPIRENONE\ETHINYL ESTRADIOL
  2. MIRENA [Suspect]
     Active Substance: LEVONORGESTREL
     Indication: CONTRACEPTION
     Dosage: 20 MCG/24HR, CONT
     Route: 015
     Dates: start: 20100527, end: 20100823

REACTIONS (14)
  - Uterine perforation [None]
  - Pelvic discomfort [None]
  - Depression [None]
  - Pelvic pain [None]
  - Emotional distress [None]
  - Abdominal pain [None]
  - Anxiety [None]
  - Psychological trauma [None]
  - Uterine perforation [None]
  - Abdominal discomfort [None]
  - Injury [None]
  - Pain [None]
  - Device issue [None]
  - Device breakage [None]

NARRATIVE: CASE EVENT DATE: 20100527
